FAERS Safety Report 7693624-X (Version None)
Quarter: 2011Q3

REPORT INFORMATION
  Report Type: 
  Country: None (occurrence: None)
  Receive Date: 20110819
  Receipt Date: 20110812
  Transmission Date: 20111222
  Serious: Yes (Death, Hospitalization)
  Sender: FDA-Public Use
  Company Number: KR-ROCHE-711261

PATIENT
  Age: 31 Year
  Sex: Male
  Weight: 85.5 kg

DRUGS (4)
  1. ACETAMINOPHEN [Concomitant]
     Indication: PAIN
     Dates: start: 20100601
  2. ELOXATIN [Suspect]
     Indication: METASTATIC GASTRIC CANCER
     Route: 042
     Dates: start: 20090811, end: 20091210
  3. SUNITINIB MALATE [Suspect]
     Indication: METASTATIC GASTRIC CANCER
     Dosage: DRUG NAME: SUTENE, TWO WEEKS ON, ONE WEEK OFF
     Route: 048
     Dates: start: 20090811, end: 20100606
  4. CAPECITABINE [Suspect]
     Indication: METASTATIC GASTRIC CANCER
     Route: 048
     Dates: start: 20090811, end: 20100607

REACTIONS (1)
  - PNEUMONIA [None]
